FAERS Safety Report 16207443 (Version 1)
Quarter: 2019Q2

REPORT INFORMATION
  Report Type: Spontaneous
  Country: US (occurrence: US)
  Receive Date: 20190417
  Receipt Date: 20190417
  Transmission Date: 20190711
  Serious: Yes (Other)
  Sender: FDA-Public Use
  Company Number: US-PFIZER INC-2019162314

PATIENT
  Age: 81 Year
  Sex: Female

DRUGS (1)
  1. IBRANCE [Suspect]
     Active Substance: PALBOCICLIB
     Indication: BREAST CANCER METASTATIC
     Dosage: UNK

REACTIONS (6)
  - Hypotension [Unknown]
  - Neuropathy peripheral [Unknown]
  - Fatigue [Unknown]
  - Epistaxis [Unknown]
  - Thrombosis [Unknown]
  - Malaise [Unknown]
